FAERS Safety Report 22530967 (Version 1)
Quarter: 2023Q2

REPORT INFORMATION
  Report Type: Spontaneous
  Country: FR (occurrence: FR)
  Receive Date: 20230607
  Receipt Date: 20230607
  Transmission Date: 20230722
  Serious: Yes (Hospitalization)
  Sender: FDA-Public Use
  Company Number: FR-SUN PHARMACEUTICAL INDUSTRIES LTD-2023RR-392967

PATIENT
  Age: 75 Year
  Sex: Male
  Weight: 76 kg

DRUGS (5)
  1. OXALIPLATIN [Suspect]
     Active Substance: OXALIPLATIN
     Indication: Bile duct adenocarcinoma
     Dosage: 165 MILLIGRAM, FORTNIGHT
     Route: 040
     Dates: start: 20230127, end: 20230224
  2. FLUOROURACIL [Suspect]
     Active Substance: FLUOROURACIL
     Indication: Bile duct adenocarcinoma
     Dosage: 3800 MILLIGRAM, FORTNIGHT
     Route: 040
     Dates: start: 20230127, end: 20230224
  3. KARDEGIC [Suspect]
     Active Substance: ASPIRIN DL-LYSINE
     Indication: Cardiovascular event prophylaxis
     Dosage: 1 DOSAGE FORM, DAILY
     Route: 048
     Dates: end: 20230303
  4. GEMCITABINE [Concomitant]
     Active Substance: GEMCITABINE
     Indication: Bile duct adenocarcinoma
     Dosage: UNK
     Route: 040
     Dates: start: 20220412, end: 20230113
  5. CISPLATIN [Concomitant]
     Active Substance: CISPLATIN
     Indication: Bile duct adenocarcinoma
     Dosage: UNK
     Route: 040
     Dates: start: 20220412, end: 20221104

REACTIONS (1)
  - Cerebral haemorrhage [Not Recovered/Not Resolved]

NARRATIVE: CASE EVENT DATE: 20230303
